FAERS Safety Report 17053142 (Version 6)
Quarter: 2020Q4

REPORT INFORMATION
  Report Type: Spontaneous
  Country: US (occurrence: US)
  Receive Date: 20191120
  Receipt Date: 20201207
  Transmission Date: 20210113
  Serious: Yes (Other)
  Sender: FDA-Public Use
  Company Number: US-PFIZER INC-2019267812

PATIENT
  Age: 4 Year
  Sex: Female
  Weight: 14 kg

DRUGS (6)
  1. XALKORI [Suspect]
     Active Substance: CRIZOTINIB
     Dosage: 200 MG, UNK
     Dates: start: 20190912, end: 20190919
  2. XALKORI [Suspect]
     Active Substance: CRIZOTINIB
     Indication: INFLAMMATORY MYOFIBROBLASTIC TUMOUR
     Dosage: 200 MG, 2X/DAY FOR MONDAY-SATURDAY
  3. XALKORI [Suspect]
     Active Substance: CRIZOTINIB
     Dosage: TAKE 2 CAP TWICE A DAY MONDAY-SATURDAY, ON SUNDAYS TAKE 1 CAPSULE ONLY
  4. XALKORI [Suspect]
     Active Substance: CRIZOTINIB
     Dosage: 270 MG/M2/DAY, 2X/DAY
     Route: 048
     Dates: start: 20190708
  5. XALKORI [Suspect]
     Active Substance: CRIZOTINIB
     Dosage: 200 MG
     Route: 048
  6. XALKORI [Suspect]
     Active Substance: CRIZOTINIB
     Dosage: 200 MG, UNK
     Dates: end: 20190910

REACTIONS (6)
  - Headache [Recovered/Resolved]
  - Pyrexia [Unknown]
  - Neck pain [Unknown]
  - Neutrophil count decreased [Unknown]
  - Vomiting [Recovered/Resolved]
  - Off label use [Unknown]

NARRATIVE: CASE EVENT DATE: 201908
